FAERS Safety Report 21054841 (Version 5)
Quarter: 2023Q1

REPORT INFORMATION
  Report Type: Spontaneous
  Country: JP (occurrence: JP)
  Receive Date: 20220707
  Receipt Date: 20230104
  Transmission Date: 20230417
  Serious: Yes (Life-Threatening)
  Sender: FDA-Public Use
  Company Number: JP-SA-SAC20220705001117

PATIENT
  Age: 54 Year
  Sex: Female
  Weight: 33.4 kg

DRUGS (87)
  1. MYSTAN [Suspect]
     Active Substance: CLOBAZAM
     Indication: Product used for unknown indication
     Dosage: 3 MG, QD
     Route: 048
     Dates: start: 20220425, end: 20220501
  2. MYSTAN [Suspect]
     Active Substance: CLOBAZAM
     Indication: Status epilepticus
     Dosage: 3.2 MG, QD
     Route: 048
  3. MYSTAN [Suspect]
     Active Substance: CLOBAZAM
     Dosage: 15 MG, QD
     Route: 048
     Dates: start: 20220601
  4. MYSTAN [Suspect]
     Active Substance: CLOBAZAM
     Dosage: 6 MG, QD
     Route: 048
     Dates: start: 20220502, end: 20220509
  5. MYSTAN [Suspect]
     Active Substance: CLOBAZAM
     Dosage: 9 MG, QD
     Route: 048
     Dates: start: 20220510, end: 20220516
  6. MYSTAN [Suspect]
     Active Substance: CLOBAZAM
     Dosage: 12 MG, QD
     Route: 048
     Dates: start: 20220517, end: 20220531
  7. MYSTAN [Suspect]
     Active Substance: CLOBAZAM
     Dosage: 6 MG, QD
     Route: 048
     Dates: start: 20220502, end: 20220509
  8. MYSTAN [Suspect]
     Active Substance: CLOBAZAM
     Dosage: 9 MG, QD
     Route: 048
     Dates: start: 20220510, end: 20220516
  9. MYSTAN [Suspect]
     Active Substance: CLOBAZAM
     Dosage: 12 MG, QD
     Route: 048
     Dates: start: 20220517, end: 20220531
  10. MYSTAN [Suspect]
     Active Substance: CLOBAZAM
     Dosage: 15 MG, QD
     Route: 048
     Dates: start: 20220601
  11. MYSTAN [Suspect]
     Active Substance: CLOBAZAM
     Dosage: 6MG QD
     Route: 048
     Dates: start: 20220502, end: 20220509
  12. MYSTAN [Suspect]
     Active Substance: CLOBAZAM
     Dosage: 9 MG, QD
     Route: 048
     Dates: start: 20220510, end: 20220516
  13. MYSTAN [Suspect]
     Active Substance: CLOBAZAM
     Dosage: 12 MG, QD
     Route: 048
     Dates: start: 20220517, end: 20220531
  14. MYSTAN [Suspect]
     Active Substance: CLOBAZAM
     Dosage: 15 MG, QD ONGOING
     Route: 048
     Dates: start: 20220601
  15. CLONAZEPAM [Suspect]
     Active Substance: CLONAZEPAM
     Indication: Dysphagia
     Dosage: 3.2MG, QD
     Route: 048
     Dates: start: 20220330, end: 20220413
  16. CLONAZEPAM [Suspect]
     Active Substance: CLONAZEPAM
     Dosage: 3 MG, QD
     Route: 048
     Dates: start: 20220413, end: 20220419
  17. CLONAZEPAM [Suspect]
     Active Substance: CLONAZEPAM
     Dosage: 3.5 MG, QD
     Route: 048
     Dates: start: 20220419, end: 20220511
  18. CLONAZEPAM [Suspect]
     Active Substance: CLONAZEPAM
     Dosage: 2.5 MG, QD
     Route: 048
     Dates: start: 20220511, end: 20220518
  19. CLONAZEPAM [Suspect]
     Active Substance: CLONAZEPAM
     Dosage: 1.5 MG, QD
     Route: 048
     Dates: start: 20220518, end: 20220601
  20. CLONAZEPAM [Suspect]
     Active Substance: CLONAZEPAM
     Dosage: 3 MG, QD
     Route: 048
     Dates: start: 20220413, end: 20220419
  21. CLONAZEPAM [Suspect]
     Active Substance: CLONAZEPAM
     Dosage: 3.5 MG, QD
     Route: 048
     Dates: start: 20220419, end: 20220511
  22. CLONAZEPAM [Suspect]
     Active Substance: CLONAZEPAM
     Dosage: 2.5 MG, QD
     Route: 048
     Dates: start: 20220511, end: 20220518
  23. CLONAZEPAM [Suspect]
     Active Substance: CLONAZEPAM
     Dosage: 1.5 MG, QD
     Route: 048
     Dates: start: 20220518, end: 20220524
  24. CLONAZEPAM [Suspect]
     Active Substance: CLONAZEPAM
     Dosage: 0.7 MG, QD
     Route: 048
     Dates: start: 20220524, end: 20220601
  25. PHENYTOIN [Suspect]
     Active Substance: PHENYTOIN
     Indication: Status epilepticus
     Dosage: 180 MG, QD
     Route: 048
     Dates: end: 20220420
  26. PHENYTOIN [Suspect]
     Active Substance: PHENYTOIN
     Dosage: 150 MG, QD
     Route: 048
     Dates: start: 20220420, end: 20220608
  27. PHENYTOIN [Suspect]
     Active Substance: PHENYTOIN
     Dosage: 60 MG, QD
     Route: 048
     Dates: start: 20220714
  28. PHENYTOIN [Suspect]
     Active Substance: PHENYTOIN
     Dosage: 90 MG, QD
     Route: 048
     Dates: start: 20220704
  29. PHENYTOIN [Suspect]
     Active Substance: PHENYTOIN
     Dosage: 180 MG, QD
     Route: 048
     Dates: end: 20220420
  30. PHENYTOIN [Suspect]
     Active Substance: PHENYTOIN
     Dosage: 150 MG, QD
     Route: 048
     Dates: start: 20220420, end: 20220608
  31. PHENYTOIN [Suspect]
     Active Substance: PHENYTOIN
     Dosage: 90 MG, QD
     Route: 048
     Dates: start: 20220704
  32. PHENYTOIN [Suspect]
     Active Substance: PHENYTOIN
     Dosage: 60 MG, QD
     Route: 048
     Dates: start: 20220714, end: 20220803
  33. LAMOTRIGINE [Suspect]
     Active Substance: LAMOTRIGINE
     Indication: Status epilepticus
     Dosage: 400 MG, QD
     Route: 048
     Dates: start: 20211013, end: 20220803
  34. LAMOTRIGINE [Suspect]
     Active Substance: LAMOTRIGINE
     Dosage: 400 MG, QD
     Route: 048
  35. POTASSIUM BROMIDE [Suspect]
     Active Substance: POTASSIUM BROMIDE
     Indication: Status epilepticus
     Dosage: 1 G, QD
     Route: 048
     Dates: start: 20220330, end: 20220408
  36. POTASSIUM BROMIDE [Suspect]
     Active Substance: POTASSIUM BROMIDE
     Dosage: 0.5 G, QD
     Route: 048
     Dates: start: 20220409, end: 20220428
  37. POTASSIUM BROMIDE [Suspect]
     Active Substance: POTASSIUM BROMIDE
     Dosage: 0.75 G, QD
     Route: 048
     Dates: start: 20220429, end: 20220803
  38. POTASSIUM BROMIDE [Suspect]
     Active Substance: POTASSIUM BROMIDE
     Dosage: 0.7 G, QD
     Route: 048
  39. POTASSIUM BROMIDE [Suspect]
     Active Substance: POTASSIUM BROMIDE
     Dosage: 0.75 G, QD
     Route: 048
  40. POTASSIUM BROMIDE [Suspect]
     Active Substance: POTASSIUM BROMIDE
     Dosage: 1 G, QD, ORAL POWDER
     Route: 048
     Dates: start: 20220330, end: 20220408
  41. POTASSIUM BROMIDE [Suspect]
     Active Substance: POTASSIUM BROMIDE
     Dosage: 0.5 G, QD
     Route: 048
     Dates: start: 20220409, end: 20220428
  42. POTASSIUM BROMIDE [Suspect]
     Active Substance: POTASSIUM BROMIDE
     Dosage: 0.75 G, QD
     Route: 048
     Dates: start: 20220429, end: 20220803
  43. MIDAZOLAM [Suspect]
     Active Substance: MIDAZOLAM
     Indication: Status epilepticus
     Dosage: 0.09 MG/KG, QD
     Route: 040
     Dates: start: 20220419, end: 20220419
  44. MIDAZOLAM [Suspect]
     Active Substance: MIDAZOLAM
     Dosage: 0.15 MG/KG, QD
     Route: 042
     Dates: start: 20220502, end: 20220502
  45. MIDAZOLAM [Suspect]
     Active Substance: MIDAZOLAM
     Dosage: 0.06 MG/KG, QD
     Route: 040
     Dates: start: 20220420, end: 20220420
  46. MIDAZOLAM [Suspect]
     Active Substance: MIDAZOLAM
     Dosage: 0.9 MG/KG, QD
     Route: 065
     Dates: start: 20220420, end: 20220420
  47. MIDAZOLAM [Suspect]
     Active Substance: MIDAZOLAM
     Dosage: 0.12 MG/KG, QD
     Route: 040
     Dates: start: 20220714, end: 20220714
  48. MIDAZOLAM [Suspect]
     Active Substance: MIDAZOLAM
     Dosage: 0.15 MG/KG, QD
     Route: 042
     Dates: start: 20220502, end: 20220502
  49. MIDAZOLAM [Suspect]
     Active Substance: MIDAZOLAM
     Dosage: 0.12 MG/KG, QD
     Route: 042
     Dates: start: 20220509, end: 20220509
  50. MIDAZOLAM [Suspect]
     Active Substance: MIDAZOLAM
     Dosage: 0.09 MG/KG, QD
     Route: 042
     Dates: start: 20220511, end: 20220511
  51. MIDAZOLAM [Suspect]
     Active Substance: MIDAZOLAM
     Dosage: 0.06 MG/KG, QD
     Route: 042
     Dates: start: 20220524, end: 20220524
  52. MIDAZOLAM [Suspect]
     Active Substance: MIDAZOLAM
     Dosage: 0.03 MG/KG, QD
     Route: 040
     Dates: start: 20220714, end: 20220714
  53. MIDAZOLAM [Suspect]
     Active Substance: MIDAZOLAM
     Dosage: UNK
     Route: 042
     Dates: start: 20220530, end: 20220530
  54. MIDAZOLAM [Suspect]
     Active Substance: MIDAZOLAM
     Dosage: 0.12 MG/KG, QD
     Route: 040
     Dates: start: 20220714, end: 20220714
  55. MIDAZOLAM [Suspect]
     Active Substance: MIDAZOLAM
     Dosage: 0.059 MG/KG, QD
     Route: 040
     Dates: start: 20220420, end: 20220420
  56. MIDAZOLAM [Suspect]
     Active Substance: MIDAZOLAM
     Dosage: UNK
     Route: 041
     Dates: start: 20220420, end: 20220422
  57. MIDAZOLAM [Suspect]
     Active Substance: MIDAZOLAM
     Dosage: 3 MG, QD
     Route: 040
     Dates: start: 20220427, end: 20220427
  58. MIDAZOLAM [Suspect]
     Active Substance: MIDAZOLAM
     Dosage: 2 MG, QD
     Route: 042
     Dates: start: 20220502, end: 20220502
  59. MIDAZOLAM [Suspect]
     Active Substance: MIDAZOLAM
     Dosage: 1.5 MG, QD
     Route: 040
     Dates: start: 20220511, end: 20220511
  60. MIDAZOLAM [Suspect]
     Active Substance: MIDAZOLAM
     Dosage: 0.03 MG/KG, QD
     Route: 042
     Dates: start: 20220526, end: 20220526
  61. MIDAZOLAM [Suspect]
     Active Substance: MIDAZOLAM
     Dosage: 0.12 MG/KG, QD
     Route: 040
  62. DIAZEPAM [Suspect]
     Active Substance: DIAZEPAM
     Indication: Status epilepticus
     Dosage: 10 MG, QD
     Route: 054
     Dates: start: 20220419, end: 20220419
  63. DIAZEPAM [Suspect]
     Active Substance: DIAZEPAM
     Dosage: 10 MG, QD
     Route: 054
     Dates: start: 20220420, end: 20220420
  64. DIAZEPAM [Suspect]
     Active Substance: DIAZEPAM
     Dosage: 10 MG, BID
     Route: 054
     Dates: start: 20220714, end: 20220714
  65. DIAZEPAM [Suspect]
     Active Substance: DIAZEPAM
     Dosage: UNK
     Route: 054
     Dates: start: 20220422
  66. MOSAPRIDE CITRATE [Concomitant]
     Active Substance: MOSAPRIDE CITRATE
     Indication: Product used for unknown indication
     Dosage: UNK
     Route: 065
  67. MOSAPRIDE CITRATE [Concomitant]
     Active Substance: MOSAPRIDE CITRATE
     Route: 065
  68. MAGNESIUM OXIDE [Concomitant]
     Active Substance: MAGNESIUM OXIDE
     Indication: Product used for unknown indication
     Dosage: UNK
     Route: 065
  69. MAGNESIUM OXIDE [Concomitant]
     Active Substance: MAGNESIUM OXIDE
     Route: 065
  70. MAGNESIUM OXIDE [Concomitant]
     Active Substance: MAGNESIUM OXIDE
     Route: 065
  71. CARBOCYSTEINE [Concomitant]
     Active Substance: CARBOCYSTEINE
     Indication: Product used for unknown indication
     Dosage: UNK
     Route: 065
     Dates: start: 20220414, end: 20220608
  72. CARBOCYSTEINE [Concomitant]
     Active Substance: CARBOCYSTEINE
     Route: 065
     Dates: start: 20220414, end: 20220608
  73. LANSOPRAZOLE [Concomitant]
     Active Substance: LANSOPRAZOLE
     Indication: Product used for unknown indication
     Dosage: UNK
     Route: 065
     Dates: start: 20220419, end: 20220420
  74. LANSOPRAZOLE [Concomitant]
     Active Substance: LANSOPRAZOLE
     Route: 065
     Dates: start: 20220419, end: 20220420
  75. CHLORAL HYDRATE [Concomitant]
     Active Substance: CHLORAL HYDRATE
     Indication: Product used for unknown indication
     Dosage: UNK
     Route: 065
     Dates: start: 20220419, end: 20220419
  76. CHLORAL HYDRATE [Concomitant]
     Active Substance: CHLORAL HYDRATE
     Route: 065
     Dates: start: 20220419, end: 20220419
  77. LANSOPRAZOLE [Concomitant]
     Active Substance: LANSOPRAZOLE
     Indication: Product used for unknown indication
     Dosage: UNK
     Route: 048
     Dates: start: 20220420, end: 20220601
  78. LANSOPRAZOLE [Concomitant]
     Active Substance: LANSOPRAZOLE
     Route: 048
     Dates: start: 20220420, end: 20220601
  79. LANSOPRAZOLE [Concomitant]
     Active Substance: LANSOPRAZOLE
     Route: 048
     Dates: start: 20220420, end: 20220601
  80. AMBROXOL HYDROCHLORIDE [Concomitant]
     Active Substance: AMBROXOL HYDROCHLORIDE
     Indication: Product used for unknown indication
     Dosage: UNK
     Route: 054
     Dates: start: 20220414, end: 20220608
  81. AMBROXOL HYDROCHLORIDE [Concomitant]
     Active Substance: AMBROXOL HYDROCHLORIDE
     Route: 065
     Dates: start: 20220414, end: 20220608
  82. ROZEREM [Concomitant]
     Active Substance: RAMELTEON
     Indication: Product used for unknown indication
     Dosage: UNK
     Route: 065
     Dates: start: 20220601, end: 20220815
  83. ROZEREM [Concomitant]
     Active Substance: RAMELTEON
     Route: 065
     Dates: start: 20220607, end: 20220815
  84. MOSAPRIDE [Concomitant]
     Active Substance: MOSAPRIDE
     Indication: Product used for unknown indication
     Dosage: UNK
     Route: 065
  85. SODIUM PICOSULFATE [Concomitant]
     Active Substance: SODIUM PICOSULFATE
     Indication: Product used for unknown indication
     Dosage: UNK
     Route: 048
     Dates: start: 20220422
  86. SODIUM PICOSULFATE [Concomitant]
     Active Substance: SODIUM PICOSULFATE
     Route: 065
     Dates: start: 20220422
  87. SODIUM PICOSULFATE [Concomitant]
     Active Substance: SODIUM PICOSULFATE
     Route: 065
     Dates: start: 20220422, end: 20220520

REACTIONS (5)
  - Irregular sleep wake rhythm disorder [Recovered/Resolved]
  - Oxygen saturation decreased [Recovering/Resolving]
  - PCO2 increased [Recovered/Resolved]
  - Respiratory rate decreased [Recovering/Resolving]
  - Blood albumin decreased [Recovering/Resolving]

NARRATIVE: CASE EVENT DATE: 20220421
